FAERS Safety Report 11599575 (Version 1)
Quarter: 2015Q4

REPORT INFORMATION
  Report Type: Report from Study
  Country: US (occurrence: US)
  Receive Date: 20151006
  Receipt Date: 20151006
  Transmission Date: 20160304
  Serious: Yes (Other)
  Sender: FDA-Public Use
  Company Number: PHEH2013US015002

PATIENT
  Sex: Female
  Weight: 56.69 kg

DRUGS (4)
  1. PULMOZYME [Concomitant]
     Active Substance: DORNASE ALFA
     Indication: PRODUCT USED FOR UNKNOWN INDICATION
     Route: 065
  2. ALBUTEROL. [Concomitant]
     Active Substance: ALBUTEROL
     Indication: PRODUCT USED FOR UNKNOWN INDICATION
     Route: 065
  3. TOBI [Suspect]
     Active Substance: TOBRAMYCIN
     Indication: HETEROTAXIA
     Dosage: 1 DF, BID
     Route: 055
  4. TOBI [Suspect]
     Active Substance: TOBRAMYCIN
     Indication: BRONCHIECTASIS

REACTIONS (6)
  - Cough [Unknown]
  - Pharyngeal haemorrhage [Unknown]
  - Throat irritation [Unknown]
  - Product use issue [Unknown]
  - Aphonia [Unknown]
  - Dysphonia [Unknown]
